FAERS Safety Report 5191353-8 (Version None)
Quarter: 2006Q4

REPORT INFORMATION
  Report Type: 
  Country: None (occurrence: None)
  Receive Date: 20061219
  Receipt Date: 20061207
  Transmission Date: 20070319
  Serious: Yes (Other)
  Sender: FDA-Public Use
  Company Number: HQWYE594207DEC06

PATIENT
  Sex: Female

DRUGS (3)
  1. PANTOPRAZOLE SODIUM [Suspect]
     Indication: HELICOBACTER INFECTION
     Dosage: 40 MG 2X PER 1 DAY ORAL
     Route: 048
  2. AMOXICILLIN [Suspect]
     Indication: HELICOBACTER INFECTION
     Dosage: 1000 MG 2X PER 1 DAY ORAL
     Route: 048
  3. CLARITHROMYCIN [Suspect]
     Indication: HELICOBACTER INFECTION
     Dosage: 500 MG 2X PER 1 DAY ORAL
     Route: 048

REACTIONS (1)
  - BLOOD GLUCOSE DECREASED [None]
